FAERS Safety Report 6449059-0 (Version None)
Quarter: 2009Q4

REPORT INFORMATION
  Report Type: 
  Country: None (occurrence: None)
  Receive Date: 20091119
  Receipt Date: 20091119
  Transmission Date: 20100525
  Serious: Yes (Other)
  Sender: FDA-Public Use
  Company Number: None

PATIENT
  Age: 68 Year
  Sex: Female
  Weight: 67.586 kg

DRUGS (1)
  1. LEVETIRACETAM [Suspect]
     Dosage: 750 MG AM PO 1000 MG PM PO
     Route: 048

REACTIONS (5)
  - ATAXIA [None]
  - COGNITIVE DISORDER [None]
  - DIZZINESS [None]
  - DYSARTHRIA [None]
  - PRODUCT SUBSTITUTION ISSUE [None]
